FAERS Safety Report 5252274-5 (Version None)
Quarter: 2007Q1

REPORT INFORMATION
  Report Type: 
  Country: None (occurrence: None)
  Receive Date: 20070301
  Receipt Date: 20070222
  Transmission Date: 20070707
  Serious: Yes (Other)
  Sender: FDA-Public Use
  Company Number: CA-JNJFOC-20060305403

PATIENT
  Sex: Male

DRUGS (8)
  1. REMICADE [Suspect]
     Route: 042
  2. REMICADE [Suspect]
     Route: 042
  3. REMICADE [Suspect]
     Indication: ANKYLOSING SPONDYLITIS
     Route: 042
  4. PERCOCET [Concomitant]
     Dosage: 5-6 TABLETS AS NEEDED
  5. MTX [Concomitant]
  6. FOLIC ACID [Concomitant]
  7. BENADRYL [Concomitant]
     Indication: PREMEDICATION
  8. HYDROCORTISONE [Concomitant]
     Indication: PREMEDICATION

REACTIONS (1)
  - GLOMERULONEPHRITIS MEMBRANOUS [None]
